FAERS Safety Report 6983854-4 (Version None)
Quarter: 2010Q3

REPORT INFORMATION
  Report Type: 
  Country: None (occurrence: None)
  Receive Date: 20100914
  Receipt Date: 20090324
  Transmission Date: 20110219
  Serious: No
  Sender: FDA-Public Use
  Company Number: US-WYE-H08714909

PATIENT
  Age: 78 Year
  Sex: Female
  Weight: 68.1 kg

DRUGS (3)
  1. ADVIL LIQUI-GELS [Suspect]
     Indication: PAIN IN EXTREMITY
     Dosage: 2 TABLETS EVERY 4 TO 6 HOURS, UP TO SIX TABLETS PER DAY
     Route: 048
     Dates: start: 20081101, end: 20090201
  2. ADVIL LIQUI-GELS [Suspect]
     Dosage: 3 TABLETS PER DAY
     Route: 048
     Dates: start: 20090201, end: 20090323
  3. ZANTAC [Concomitant]

REACTIONS (3)
  - JOINT SWELLING [None]
  - OEDEMA PERIPHERAL [None]
  - SKIN DISCOLOURATION [None]
